FAERS Safety Report 4496200-5 (Version None)
Quarter: 2004Q4

REPORT INFORMATION
  Report Type: 
  Country: None (occurrence: None)
  Receive Date: 20041108
  Receipt Date: 20041108
  Transmission Date: 20050328
  Serious: Yes (Hospitalization)
  Sender: FDA-Public Use
  Company Number: None

PATIENT
  Sex: Male
  Weight: 50.6668 kg

DRUGS (2)
  1. CISPLATIN [Suspect]
     Indication: LARYNGEAL CANCER
     Dosage: 100MG/M2 DAY 1,22,43 IV
     Route: 042
     Dates: start: 20040823
  2. CISPLATIN [Suspect]
     Indication: LARYNGEAL CANCER
     Dosage: 100MG/M2 DAY 1,22,43 IV
     Route: 042
     Dates: start: 20040913

REACTIONS (7)
  - INTERNATIONAL NORMALISED RATIO INCREASED [None]
  - NAUSEA [None]
  - OESOPHAGITIS [None]
  - PROTHROMBIN TIME PROLONGED [None]
  - RETCHING [None]
  - STOMATITIS [None]
  - VOMITING [None]
